FAERS Safety Report 6134583-0 (Version None)
Quarter: 2009Q1

REPORT INFORMATION
  Report Type: 
  Country: None (occurrence: None)
  Receive Date: 20090327
  Receipt Date: 20070905
  Transmission Date: 20090719
  Serious: Yes (Death)
  Sender: FDA-Public Use
  Company Number: ES-JNJFOC-20090304149

PATIENT
  Age: 72 Year

DRUGS (1)
  1. REMICADE [Suspect]
     Indication: SCLERODERMA
     Route: 042

REACTIONS (1)
  - HEPATIC FUNCTION ABNORMAL [None]
